FAERS Safety Report 8515683-4 (Version None)
Quarter: 2012Q3

REPORT INFORMATION
  Report Type: 
  Country: None (occurrence: None)
  Receive Date: 20120717
  Receipt Date: 20120713
  Transmission Date: 20120928
  Serious: Yes (Hospitalization, Other)
  Sender: FDA-Public Use
  Company Number: PHFR2012IE002695

PATIENT
  Sex: Male

DRUGS (2)
  1. KWELLS [Concomitant]
  2. CLOZARIL [Suspect]
     Indication: SCHIZOPHRENIA
     Dosage: 600 MG, UNK
     Route: 048
     Dates: start: 20010701

REACTIONS (2)
  - NEOPLASM MALIGNANT [None]
  - ABDOMINAL NEOPLASM [None]
